FAERS Safety Report 8947929 (Version 1)
Quarter: 2012Q4

REPORT INFORMATION
  Report Type: 
  Country: US (occurrence: US)
  Receive Date: 20121204
  Receipt Date: 20121204
  Transmission Date: 20130627
  Serious: No
  Sender: FDA-Public Use
  Company Number: US-BAYER-2012-126513

PATIENT
  Age: 79 Year
  Sex: Female
  Weight: 70 kg

DRUGS (8)
  1. ALEVE CAPLET/TABLET,MIDOL EXTENDED RELIEF CAPLET [Suspect]
     Dosage: 1 DF, QD
     Dates: start: 2011
  2. CITALOPRAM [Concomitant]
  3. SIMVASTIN [Concomitant]
  4. PANTOPRAZOLE [Concomitant]
  5. LEVOTHYROXINE [Concomitant]
  6. METROTROLOL [Concomitant]
  7. GEMSIDE [Concomitant]
  8. COUMADIN [Concomitant]

REACTIONS (1)
  - Incorrect drug administration duration [Not Recovered/Not Resolved]
